FAERS Safety Report 10913885 (Version 1)
Quarter: 2015Q1

REPORT INFORMATION
  Report Type: Spontaneous
  Country: US (occurrence: US)
  Receive Date: 20150313
  Receipt Date: 20150313
  Transmission Date: 20150721
  Serious: Yes (Other)
  Sender: FDA-Public Use
  Company Number: US-ELI_LILLY_AND_COMPANY-US201503000557

PATIENT
  Sex: Male

DRUGS (3)
  1. CYMBALTA [Suspect]
     Active Substance: DULOXETINE HYDROCHLORIDE
     Indication: BACK PAIN
     Dosage: UNK UNK, UNKNOWN
     Route: 065
     Dates: end: 20130613
  2. CYMBALTA [Suspect]
     Active Substance: DULOXETINE HYDROCHLORIDE
     Indication: DEPRESSION
     Dosage: UNK UNK, UNKNOWN
     Route: 065
     Dates: start: 20110331, end: 20130426
  3. CYMBALTA [Suspect]
     Active Substance: DULOXETINE HYDROCHLORIDE
     Dosage: UNK UNK, UNKNOWN
     Route: 065
     Dates: end: 20131202

REACTIONS (15)
  - Amnesia [Unknown]
  - Pain [Unknown]
  - Anger [Unknown]
  - Paraesthesia [Unknown]
  - Vomiting [Unknown]
  - Insomnia [Unknown]
  - Drug withdrawal syndrome [Unknown]
  - Agitation [Unknown]
  - Nightmare [Unknown]
  - Panic attack [Unknown]
  - Dizziness [Unknown]
  - Suicidal ideation [Unknown]
  - Mood swings [Unknown]
  - Irritability [Unknown]
  - Diarrhoea [Unknown]
